FAERS Safety Report 15409840 (Version 1)
Quarter: 2018Q3

REPORT INFORMATION
  Report Type: Report from Study
  Country: CO (occurrence: CO)
  Receive Date: 20180920
  Receipt Date: 20180920
  Transmission Date: 20181010
  Serious: Yes (Death, Hospitalization, Other)
  Sender: FDA-Public Use
  Company Number: CO-UCBSA-2018042181

PATIENT
  Age: 86 Year
  Sex: Female

DRUGS (2)
  1. ROTIGOTINE [Suspect]
     Active Substance: ROTIGOTINE
     Indication: PARKINSON^S DISEASE
     Dosage: 12 MG, ONCE DAILY (QD)
     Route: 062
     Dates: start: 20121023, end: 20180204
  2. AMANTADINA [Concomitant]
     Indication: PARKINSON^S DISEASE
     Dosage: 100 MG, ONCE DAILY (QD)
     Route: 048

REACTIONS (3)
  - Urinary tract infection [Fatal]
  - Pneumonia [Fatal]
  - Cardio-respiratory arrest [Fatal]

NARRATIVE: CASE EVENT DATE: 20180120
